FAERS Safety Report 22979176 (Version 2)
Quarter: 2023Q4

REPORT INFORMATION
  Report Type: Report from Study
  Country: US (occurrence: US)
  Receive Date: 20230925
  Receipt Date: 20231006
  Transmission Date: 20240110
  Serious: Yes (Other)
  Sender: FDA-Public Use
  Company Number: US-TEVA-2023-US-2929177

PATIENT
  Age: 19 Year
  Sex: Female

DRUGS (2)
  1. CLARAVIS [Suspect]
     Active Substance: ISOTRETINOIN
     Indication: Product used for unknown indication
     Dosage: 80 MILLIGRAM DAILY; 40 MG
     Dates: start: 20230328, end: 20230915
  2. CLARAVIS [Suspect]
     Active Substance: ISOTRETINOIN
     Dosage: 40 MG

REACTIONS (1)
  - Unintended pregnancy [Unknown]

NARRATIVE: CASE EVENT DATE: 20230813
